FAERS Safety Report 24607153 (Version 1)
Quarter: 2024Q4

REPORT INFORMATION
  Report Type: Spontaneous
  Country: US (occurrence: None)
  Receive Date: 20241110
  Receipt Date: 20241110
  Transmission Date: 20250114
  Serious: Yes (Death, Life-Threatening, Hospitalization, Other)
  Sender: Public
  Company Number: None

PATIENT
  Sex: 0

DRUGS (1)
  1. NUVARING [Suspect]
     Active Substance: ETHINYL ESTRADIOL\ETONOGESTREL
     Indication: Contraception
     Dates: start: 20230913, end: 20241007

REACTIONS (3)
  - Portosplenomesenteric venous thrombosis [None]
  - Intestinal ischaemia [None]
  - Sepsis [None]

NARRATIVE: CASE EVENT DATE: 20231007
